FAERS Safety Report 15426703 (Version 1)
Quarter: 2018Q3

REPORT INFORMATION
  Report Type: Report from Study
  Country: US (occurrence: US)
  Receive Date: 20180925
  Receipt Date: 20180925
  Transmission Date: 20181010
  Serious: Yes (Other)
  Sender: FDA-Public Use
  Company Number: US-AMGEN-USASL2018131789

PATIENT
  Age: 76 Year
  Sex: Female

DRUGS (1)
  1. ENBREL [Suspect]
     Active Substance: ETANERCEPT
     Indication: RHEUMATOID ARTHRITIS
     Dosage: 50 MG, QWK
     Route: 065

REACTIONS (5)
  - Fall [Unknown]
  - Musculoskeletal stiffness [Unknown]
  - Cataract operation [Unknown]
  - Hepatic enzyme increased [Unknown]
  - Pain in extremity [Unknown]

NARRATIVE: CASE EVENT DATE: 2018
